FAERS Safety Report 24294602 (Version 2)
Quarter: 2024Q3

REPORT INFORMATION
  Report Type: Spontaneous
  Country: FR (occurrence: FR)
  Receive Date: 20240906
  Receipt Date: 20240920
  Transmission Date: 20241016
  Serious: Yes (Hospitalization, Other)
  Sender: PFIZER
  Company Number: FR-PFIZER INC-PV202400115349

PATIENT
  Age: 50 Year
  Sex: Male
  Weight: 75 kg

DRUGS (11)
  1. OXBRYTA [Suspect]
     Active Substance: VOXELOTOR
     Indication: Haemolytic anaemia
     Dosage: 1500 MG, DAILY
     Dates: start: 20221201, end: 20230809
  2. OXBRYTA [Suspect]
     Active Substance: VOXELOTOR
     Dosage: 1000 MG, DAILY
     Dates: start: 202308
  3. SIKLOS [Concomitant]
     Active Substance: HYDROXYUREA
     Indication: Sickle cell disease
     Dosage: 1300 MG, DAILY (1 TABLET IN MORNING AND 3 TABLETS OF 100 MG)
  4. FOLIC ACID [Concomitant]
     Active Substance: FOLIC ACID
     Indication: Haemolysis
     Dosage: 1 TABLET IN MORNING
  5. SILDENAFIL [Concomitant]
     Active Substance: SILDENAFIL
     Indication: Priapism
     Dosage: 1 TABLET IN MORNING
  6. ETILEFRINE HYDROCHLORIDE [Concomitant]
     Active Substance: ETILEFRINE HYDROCHLORIDE
     Indication: Priapism
     Dosage: 20 DROP
  7. INDACATEROL [Concomitant]
     Active Substance: INDACATEROL
     Indication: Asthma
     Dosage: 1 INHALATION IN MORNING
  8. FUROSEMIDE [Concomitant]
     Active Substance: FUROSEMIDE
     Indication: Cardiac failure
     Dosage: 1 TABLET IN MORNING
  9. COVERAM [Concomitant]
     Active Substance: AMLODIPINE\PERINDOPRIL
     Indication: Hypertension
     Dosage: 1 TABLET IN MORNING
  10. ACUPAN [Concomitant]
     Active Substance: NEFOPAM HYDROCHLORIDE
     Indication: Pain
     Dosage: 1 VIAL TO DRINK EVERY 4 HOURS
  11. VALACYCLOVIR HYDROCHLORIDE [Suspect]
     Active Substance: VALACYCLOVIR HYDROCHLORIDE
     Indication: Herpes virus infection

REACTIONS (3)
  - Sickle cell anaemia with crisis [Recovered/Resolved]
  - Acute chest syndrome [Recovered/Resolved]
  - Pain [Recovering/Resolving]

NARRATIVE: CASE EVENT DATE: 20230807
